FAERS Safety Report 15027598 (Version 1)
Quarter: 2018Q2

REPORT INFORMATION
  Report Type: Spontaneous
  Country: US (occurrence: US)
  Receive Date: 20180619
  Receipt Date: 20180619
  Transmission Date: 20180711
  Serious: No
  Sender: FDA-Public Use
  Company Number: US-BIOGEN-2018BI00580882

PATIENT
  Sex: Female

DRUGS (1)
  1. AVONEX [Suspect]
     Active Substance: INTERFERON BETA-1A
     Indication: MULTIPLE SCLEROSIS
     Route: 065
     Dates: start: 20010526, end: 20050728

REACTIONS (8)
  - Migraine [Unknown]
  - Pyrexia [Unknown]
  - Fall [Recovered/Resolved with Sequelae]
  - Intentional product misuse [Unknown]
  - Vomiting [Unknown]
  - Ligament rupture [Unknown]
  - Multiple sclerosis relapse [Unknown]
  - Foot fracture [Unknown]
